FAERS Safety Report 5391459-4 (Version None)
Quarter: 2007Q3

REPORT INFORMATION
  Report Type: 
  Country: None (occurrence: None)
  Receive Date: 20070719
  Receipt Date: 20070709
  Transmission Date: 20080115
  Serious: Yes (Hospitalization)
  Sender: FDA-Public Use
  Company Number: JP-AMGEN-US227193

PATIENT
  Sex: Female
  Weight: 47 kg

DRUGS (5)
  1. ENBREL [Suspect]
     Indication: RHEUMATOID ARTHRITIS
     Route: 058
     Dates: start: 20051017, end: 20070122
  2. ENBREL [Suspect]
     Route: 058
     Dates: start: 20070129, end: 20070507
  3. ACTONEL [Concomitant]
     Route: 048
     Dates: start: 20051128, end: 20061120
  4. BONALON [Concomitant]
     Route: 048
     Dates: start: 20070423
  5. RHEUMATREX [Concomitant]
     Indication: RHEUMATOID ARTHRITIS
     Route: 048
     Dates: start: 20051017, end: 20060522

REACTIONS (3)
  - FEMORAL NECK FRACTURE [None]
  - JOINT ABSCESS [None]
  - STAPHYLOCOCCAL ABSCESS [None]
